FAERS Safety Report 6398723-0 (Version None)
Quarter: 2009Q4

REPORT INFORMATION
  Report Type: 
  Country: None (occurrence: None)
  Receive Date: 20091013
  Receipt Date: 20090930
  Transmission Date: 20100525
  Serious: Yes (Other)
  Sender: FDA-Public Use
  Company Number: PHEH2009US12545

PATIENT
  Sex: Female

DRUGS (5)
  1. RECLAST [Suspect]
     Dosage: UNK
     Dates: start: 20081101
  2. CALCIUM [Concomitant]
  3. VITAMIN D [Concomitant]
  4. LEVOTHYROXINE [Concomitant]
  5. LASIX [Concomitant]

REACTIONS (1)
  - KNEE ARTHROPLASTY [None]
